FAERS Safety Report 24595993 (Version 3)
Quarter: 2024Q4

REPORT INFORMATION
  Report Type: Spontaneous
  Country: TR (occurrence: TR)
  Receive Date: 20241109
  Receipt Date: 20241126
  Transmission Date: 20250115
  Serious: Yes (Other)
  Sender: ABBVIE
  Company Number: TR-LUNDBECK-DKLU4006193

PATIENT
  Age: 45 Year
  Sex: Male

DRUGS (2)
  1. CIPRALEX [Suspect]
     Active Substance: ESCITALOPRAM OXALATE
     Indication: Product used for unknown indication
     Route: 065
  2. CIPRALEX [Suspect]
     Active Substance: ESCITALOPRAM OXALATE
     Indication: Product used for unknown indication
     Route: 065

REACTIONS (6)
  - Erectile dysfunction [Unknown]
  - Salivary gland disorder [Unknown]
  - Visual impairment [Unknown]
  - Dry throat [Unknown]
  - Dehydration [Unknown]
  - Inappropriate schedule of product administration [Unknown]
